FAERS Safety Report 13061727 (Version 1)
Quarter: 2016Q4

REPORT INFORMATION
  Report Type: Spontaneous
  Country: US (occurrence: US)
  Receive Date: 20161226
  Receipt Date: 20161226
  Transmission Date: 20170207
  Serious: No
  Sender: FDA-Public Use
  Company Number: US-NOVEN PHARMACEUTICALS, INC.-US2016002331

PATIENT

DRUGS (3)
  1. ZYRTEC [Concomitant]
     Active Substance: CETIRIZINE HYDROCHLORIDE
     Indication: SEASONAL ALLERGY
     Dosage: UNK, PRN
  2. MINIVELLE [Suspect]
     Active Substance: ESTRADIOL
     Indication: HORMONE REPLACEMENT THERAPY
     Dosage: 0.1 MG, UNKNOWN
     Route: 062
     Dates: start: 201609
  3. IBUPROFEN. [Concomitant]
     Active Substance: IBUPROFEN
     Indication: PAIN
     Dosage: UNK, PRN

REACTIONS (5)
  - Arthralgia [Unknown]
  - Blood oestrogen decreased [Unknown]
  - Insomnia [Unknown]
  - Hot flush [Unknown]
  - Anxiety [Unknown]

NARRATIVE: CASE EVENT DATE: 201609
